FAERS Safety Report 7128956-7 (Version None)
Quarter: 2010Q4

REPORT INFORMATION
  Report Type: 
  Country: None (occurrence: None)
  Receive Date: 20101130
  Receipt Date: 20101119
  Transmission Date: 20110411
  Serious: Yes (Congenital Anomaly, Other)
  Sender: FDA-Public Use
  Company Number: JP-JNJFOC-20101001440

PATIENT
  Sex: Male
  Weight: 3.21 kg

DRUGS (5)
  1. RISPERDAL [Suspect]
     Indication: DRUG EXPOSURE DURING PREGNANCY
     Route: 064
  2. RITODRINE HYDROCHLORIDE [Interacting]
     Indication: DRUG EXPOSURE DURING PREGNANCY
     Route: 064
  3. MAGNESIUM SULFATE [Suspect]
     Indication: DRUG EXPOSURE DURING PREGNANCY
     Route: 064
  4. LIDOCAINE [Suspect]
     Indication: DRUG EXPOSURE DURING PREGNANCY
     Route: 064
  5. NORMAL SALINE [Suspect]
     Indication: DRUG EXPOSURE DURING PREGNANCY
     Route: 064

REACTIONS (3)
  - APGAR SCORE LOW [None]
  - DRUG INTERACTION [None]
  - FOETAL HEART RATE ABNORMAL [None]
